FAERS Safety Report 8503037-6 (Version None)
Quarter: 2012Q3

REPORT INFORMATION
  Report Type: 
  Country: None (occurrence: None)
  Receive Date: 20120711
  Receipt Date: 20120627
  Transmission Date: 20120928
  Serious: Yes (Hospitalization, Disabling)
  Sender: FDA-Public Use
  Company Number: GB-MYLANLABS-2012S1013552

PATIENT
  Age: 36 Year
  Sex: Male
  Weight: 59 kg

DRUGS (21)
  1. MILRINONE LACTATE [Suspect]
     Dosage: 1.5 MICROG/KG/MIN AFTER TRANSFER TO ICU DOSE UNIT:1.5
  2. DOPAMINE HCL [Suspect]
     Indication: PRODUCT USED FOR UNKNOWN INDICATION
     Dosage: 5 MICROG/KG/MIN DOSE UNIT:5
     Route: 065
  3. CLOPIDOGREL [Concomitant]
     Indication: PRODUCT USED FOR UNKNOWN INDICATION
     Route: 065
  4. ENOXAPARIN SODIUM [Concomitant]
     Indication: PRODUCT USED FOR UNKNOWN INDICATION
     Route: 065
  5. PROPOFOL [Concomitant]
     Indication: ANAESTHESIA PROCEDURE
     Dosage: TARGET-CONTROLLED INFUSION (1.5 MICROG/ML) DOSE UNIT:1.5
  6. EZETIMIBE [Concomitant]
     Indication: PRODUCT USED FOR UNKNOWN INDICATION
     Route: 065
  7. MILRINONE LACTATE [Suspect]
     Indication: PRODUCT USED FOR UNKNOWN INDICATION
     Dosage: 2 MICROG/KG/MIN DURING SURGERY DOSE UNIT:2
  8. REMIFENTANIL [Concomitant]
     Indication: ANAESTHESIA PROCEDURE
     Dosage: 0.34 MICROG/KG/MIN
     Route: 065
  9. PHENYLEPHRINE HCL [Concomitant]
     Indication: PRODUCT USED FOR UNKNOWN INDICATION
  10. NITROGLYCERIN [Concomitant]
     Indication: PRODUCT USED FOR UNKNOWN INDICATION
     Dosage: 0.5 MG/HOUR
     Route: 065
  11. RAMIPRIL [Concomitant]
     Indication: PRODUCT USED FOR UNKNOWN INDICATION
     Route: 065
  12. NOREPINEPHRINE [Concomitant]
     Dosage: 0.05 MICROG/KG/MIN
     Route: 065
  13. ASPIRIN [Concomitant]
     Indication: PRODUCT USED FOR UNKNOWN INDICATION
     Route: 065
  14. EPINEPHRINE [Suspect]
     Indication: PRODUCT USED FOR UNKNOWN INDICATION
     Dosage: 0.075 MICROG/KG/MIN DOSE UNIT:0.075
     Route: 065
  15. HEPARIN [Concomitant]
     Indication: PRODUCT USED FOR UNKNOWN INDICATION
     Dosage: 4.3 MG/KG
     Route: 065
  16. NOREPINEPHRINE [Concomitant]
     Indication: PRODUCT USED FOR UNKNOWN INDICATION
     Dosage: 0.05-0.075 MICROG/KG/MIN THROUGHOUT PROCEDURE
  17. BISOPROLOL FUMARATE [Concomitant]
     Indication: PRODUCT USED FOR UNKNOWN INDICATION
     Route: 065
  18. TRANEXAMIC ACID [Concomitant]
     Dosage: 600 MG/HOUR (0.2 MICROG/KG/MIN)
  19. ISOFLURANE [Concomitant]
     Indication: ANAESTHESIA PROCEDURE
     Dosage: END-TIDAL ISOFLURANE 0.4-0.6% WITH AIR AND OXYGEN
     Route: 065
  20. TRANEXAMIC ACID [Concomitant]
     Indication: PRODUCT USED FOR UNKNOWN INDICATION
     Dosage: 1000 MG/HOUR DOSE UNIT:1000
  21. ISOSORBIDE DINITRATE [Concomitant]
     Indication: PRODUCT USED FOR UNKNOWN INDICATION
     Route: 065

REACTIONS (2)
  - RETINAL ARTERY OCCLUSION [None]
  - OPTIC ISCHAEMIC NEUROPATHY [None]
